FAERS Safety Report 18994553 (Version 1)
Quarter: 2021Q1

REPORT INFORMATION
  Report Type: Spontaneous
  Country: CN (occurrence: CN)
  Receive Date: 20210311
  Receipt Date: 20210311
  Transmission Date: 20210420
  Serious: Yes (Life-Threatening)
  Sender: FDA-Public Use
  Company Number: CN-OCTA-ALB00821CN

PATIENT
  Age: 59 Year
  Sex: Female

DRUGS (1)
  1. OCTAPHARMA 20% [ALBUMIN HUMAN] [Suspect]
     Active Substance: ALBUMIN HUMAN
     Indication: BLOOD ALBUMIN DECREASED
     Route: 042
     Dates: start: 20210101, end: 20210101

REACTIONS (8)
  - Anaphylactic shock [Recovering/Resolving]
  - Depressed mood [Recovered/Resolved]
  - Pruritus [Recovering/Resolving]
  - Rash [Recovering/Resolving]
  - Blood pressure decreased [Recovering/Resolving]
  - Pallor [Unknown]
  - Hyperhidrosis [Unknown]
  - Somnolence [Unknown]

NARRATIVE: CASE EVENT DATE: 20210101
